FAERS Safety Report 15330530 (Version 1)
Quarter: 2018Q4

REPORT INFORMATION
  Report Type: Spontaneous
  Country: US (occurrence: US)
  Receive Date: 20180829
  Receipt Date: 20180829
  Transmission Date: 20190204
  Serious: Yes (Other)
  Sender: FDA-Public Use
  Company Number: US-GLAXOSMITHKLINE-US2018153227

PATIENT
  Age: 41 Year
  Sex: Female

DRUGS (1)
  1. TUMS SMOOTHIES [Suspect]
     Active Substance: CALCIUM CARBONATE
     Indication: MINERAL SUPPLEMENTATION
     Dosage: UNK
     Dates: start: 20180813, end: 20180821

REACTIONS (2)
  - External ear cellulitis [Not Recovered/Not Resolved]
  - Product use in unapproved indication [Unknown]
